FAERS Safety Report 4605774-2 (Version None)
Quarter: 2005Q1

REPORT INFORMATION
  Report Type: 
  Country: None (occurrence: None)
  Receive Date: 20050115
  Receipt Date: 20040112
  Transmission Date: 20050727
  Serious: Yes (Other)
  Sender: FDA-Public Use
  Company Number: A03200400069

PATIENT
  Age: 67 Year
  Sex: Female

DRUGS (6)
  1. AMBIEN [Suspect]
     Indication: INSOMNIA
     Dosage: 10 MG HS - ORAL
     Route: 048
     Dates: start: 20010101
  2. AMITRIPTYLINE HYDROCHLORIDE [Concomitant]
  3. FUROSEMIDE [Concomitant]
  4. ETODOLAC [Concomitant]
  5. CALCIUM CARBONATE [Concomitant]
  6. FAMOTIDINE [Concomitant]

REACTIONS (1)
  - HALLUCINATION, VISUAL [None]
